FAERS Safety Report 5289452-5 (Version None)
Quarter: 2007Q2

REPORT INFORMATION
  Report Type: 
  Country: None (occurrence: None)
  Receive Date: 20070402
  Receipt Date: 20070320
  Transmission Date: 20071010
  Serious: Yes (Hospitalization)
  Sender: FDA-Public Use
  Company Number: 2007BI006356

PATIENT
  Age: 53 Year
  Sex: Female
  Weight: 79.3795 kg

DRUGS (5)
  1. AVONEX [Suspect]
     Dosage: 30 UG; QW; IM
     Route: 030
     Dates: start: 19981001, end: 20000701
  2. AVONEX [Suspect]
     Indication: DRUG USE FOR UNKNOWN INDICATION
     Dosage: 30 UG; QW;
     Dates: start: 20001101, end: 20040101
  3. AVONEX [Suspect]
     Dosage: 30 UG; QW; IM
     Route: 030
     Dates: start: 20040101, end: 20060101
  4. AVONEX [Suspect]
     Dosage: 30 UG; QW; IM
     Route: 030
     Dates: start: 20060101, end: 20061109
  5. AVONEX [Suspect]
     Dosage: 30 UG; QW; IM
     Route: 030
     Dates: start: 20061109

REACTIONS (21)
  - BALANCE DISORDER [None]
  - BLOOD PRESSURE DECREASED [None]
  - CONTUSION [None]
  - DEPRESSION [None]
  - EMOTIONAL DISTRESS [None]
  - FALL [None]
  - GAIT DISTURBANCE [None]
  - HYPOAESTHESIA [None]
  - JOINT INJURY [None]
  - MULTIPLE SCLEROSIS [None]
  - MULTIPLE SCLEROSIS RELAPSE [None]
  - MUSCLE SPASMS [None]
  - OEDEMA [None]
  - OEDEMA PERIPHERAL [None]
  - PAIN IN EXTREMITY [None]
  - PARAESTHESIA [None]
  - PERIPHERAL COLDNESS [None]
  - SKIN DISCOLOURATION [None]
  - SYNOVIAL CYST [None]
  - UNEVALUABLE EVENT [None]
  - VERTEBRAL INJURY [None]
